FAERS Safety Report 4447180-X (Version None)
Quarter: 2004Q3

REPORT INFORMATION
  Report Type: 
  Country: None (occurrence: None)
  Receive Date: 20040813
  Receipt Date: 20040617
  Transmission Date: 20050211
  Serious: No
  Sender: FDA-Public Use
  Company Number: S04-USA-03870-01

PATIENT
  Age: 83 Year
  Sex: Female

DRUGS (5)
  1. NAMENDA [Suspect]
     Dosage: 6 MG QD PO
     Route: 048
     Dates: start: 20040419, end: 20040425
  2. NAMENDA [Suspect]
     Dosage: 10 MG QD PO
     Route: 048
     Dates: start: 20040426, end: 20040502
  3. ARICEPT [Concomitant]
  4. NAMENDA [Suspect]
     Dosage: 15 MG QD PO
     Route: 048
     Dates: start: 20040503, end: 20040509
  5. NAMENDA [Suspect]
     Dosage: 20 MG QD PO
     Route: 048
     Dates: start: 20040510

REACTIONS (1)
  - MUSCLE SPASMS [None]
